FAERS Safety Report 10691410 (Version 2)
Quarter: 2015Q1

REPORT INFORMATION
  Report Type: Report from Study
  Country: FR (occurrence: FR)
  Receive Date: 20150105
  Receipt Date: 20150112
  Transmission Date: 20150720
  Serious: No
  Sender: FDA-Public Use
  Company Number: FR-GILEAD-2015-0129971

PATIENT
  Age: 67 Year
  Sex: Male

DRUGS (1)
  1. EMTRICITABINE/RILPIVIRINE/TENOFOVIR DF [Suspect]
     Active Substance: EMTRICITABINE\RILPIVIRINE\TENOFOVIR DISOPROXIL FUMARATE
     Indication: PRODUCT USED FOR UNKNOWN INDICATION
     Route: 065

REACTIONS (1)
  - Off label use [Unknown]
